FAERS Safety Report 20613574 (Version 1)
Quarter: 2022Q1

REPORT INFORMATION
  Report Type: Spontaneous
  Country: JP (occurrence: JP)
  Receive Date: 20220319
  Receipt Date: 20220319
  Transmission Date: 20220424
  Serious: Yes (Death, Life-Threatening)
  Sender: FDA-Public Use
  Company Number: JP-VIWITPHARMA-2022VWTLIT00008

PATIENT
  Age: 59 Year
  Sex: Male
  Weight: 56.6 kg

DRUGS (1)
  1. LEVETIRACETAM [Suspect]
     Active Substance: LEVETIRACETAM
     Indication: Seizure
     Route: 048

REACTIONS (7)
  - Multiple organ dysfunction syndrome [Fatal]
  - Drug reaction with eosinophilia and systemic symptoms [Fatal]
  - Hepatic failure [Fatal]
  - Jaundice [Fatal]
  - Leukopenia [Fatal]
  - Eosinophilia [Fatal]
  - Lymphadenopathy [Fatal]
